FAERS Safety Report 5621918-8 (Version None)
Quarter: 2008Q1

REPORT INFORMATION
  Report Type: 
  Country: None (occurrence: None)
  Receive Date: 20080206
  Receipt Date: 20080129
  Transmission Date: 20080703
  Serious: Yes (Hospitalization)
  Sender: FDA-Public Use
  Company Number: 2008SP000230

PATIENT
  Sex: Female

DRUGS (24)
  1. XOPENEX [Suspect]
     Indication: ASTHMA
     Dosage: 25 MG /3ML; TID; INHALATION
     Route: 055
     Dates: end: 20071113
  2. XOPENEX [Suspect]
     Indication: CHRONIC OBSTRUCTIVE PULMONARY DISEASE
     Dosage: 25 MG /3ML; TID; INHALATION
     Route: 055
     Dates: end: 20071113
  3. XOPENEX [Suspect]
     Indication: ASTHMA
     Dosage: 25 MG /3ML; TID; INHALATION
     Route: 055
     Dates: start: 20080114
  4. XOPENEX [Suspect]
     Indication: CHRONIC OBSTRUCTIVE PULMONARY DISEASE
     Dosage: 25 MG /3ML; TID; INHALATION
     Route: 055
     Dates: start: 20080114
  5. FORMOTEROL [Suspect]
     Indication: ASTHMA
     Dates: end: 20071113
  6. FORMOTEROL [Suspect]
     Indication: CHRONIC OBSTRUCTIVE PULMONARY DISEASE
     Dates: end: 20071113
  7. FORMOTEROL [Suspect]
     Indication: ASTHMA
     Dates: start: 20080114
  8. FORMOTEROL [Suspect]
     Indication: CHRONIC OBSTRUCTIVE PULMONARY DISEASE
     Dates: start: 20080114
  9. ALBUTEROL [Concomitant]
  10. FOSAMAX [Concomitant]
  11. VIT C [Concomitant]
  12. SPIRIVA [Concomitant]
  13. SINEMET [Concomitant]
  14. NITROSTAT [Concomitant]
  15. NITROFURANTOIN [Concomitant]
  16. LYRICA [Concomitant]
  17. LIPITOR [Concomitant]
  18. HYDROCODONE BITARTRATE [Concomitant]
  19. DILTIAZEM [Concomitant]
  20. UNIVASC [Concomitant]
  21. MONTELUKAST SODIUM [Concomitant]
  22. PULMICORT [Concomitant]
  23. OXYBUTYNIN CHLORIDE [Concomitant]
  24. RHINOCORT [Concomitant]

REACTIONS (1)
  - PNEUMONIA [None]
